FAERS Safety Report 9319820 (Version 1)
Quarter: 2013Q2

REPORT INFORMATION
  Report Type: Spontaneous
  Country: US (occurrence: US)
  Receive Date: 20130530
  Receipt Date: 20130530
  Transmission Date: 20140414
  Serious: Yes (Hospitalization)
  Sender: FDA-Public Use
  Company Number: US-ELI_LILLY_AND_COMPANY-US201305007201

PATIENT
  Age: 49 Year
  Sex: Male

DRUGS (1)
  1. ADCIRCA [Suspect]
     Indication: PULMONARY HYPERTENSION
     Dosage: UNK, UNKNOWN
     Route: 065
     Dates: start: 201304

REACTIONS (3)
  - Pulmonary oedema [Unknown]
  - Oxygen saturation decreased [Unknown]
  - Pulmonary hypertension [Unknown]
